FAERS Safety Report 5773143-8 (Version None)
Quarter: 2008Q2

REPORT INFORMATION
  Report Type: 
  Country: None (occurrence: None)
  Receive Date: 20080615
  Receipt Date: 20080326
  Transmission Date: 20081010
  Serious: No
  Sender: FDA-Public Use
  Company Number: US-BAYER-200811370BCC

PATIENT
  Age: 52 Year
  Sex: Male
  Weight: 88 kg

DRUGS (3)
  1. ALEVE [Suspect]
     Indication: ARTHRALGIA
  2. GLUCOSIMINE [Concomitant]
  3. PEROXOTAN [Concomitant]

REACTIONS (1)
  - RASH [None]
